FAERS Safety Report 6956496-4 (Version None)
Quarter: 2010Q3

REPORT INFORMATION
  Report Type: 
  Country: None (occurrence: None)
  Receive Date: 20100830
  Receipt Date: 20100820
  Transmission Date: 20110219
  Serious: Yes (Hospitalization)
  Sender: FDA-Public Use
  Company Number: US-AMGEN-KDL433012

PATIENT
  Sex: Female

DRUGS (2)
  1. ENBREL [Suspect]
     Indication: RHEUMATOID ARTHRITIS
     Dates: start: 20000401
  2. METHOTREXATE [Concomitant]

REACTIONS (5)
  - BRADYCARDIA [None]
  - BUNION [None]
  - CATARACT [None]
  - FOOT DEFORMITY [None]
  - SYNCOPE [None]
